FAERS Safety Report 7833897-3 (Version None)
Quarter: 2011Q4

REPORT INFORMATION
  Report Type: 
  Country: None (occurrence: None)
  Receive Date: 20111024
  Receipt Date: 20111013
  Transmission Date: 20120403
  Serious: Yes (Hospitalization)
  Sender: FDA-Public Use
  Company Number: JP-PFIZER INC-2011241697

PATIENT
  Age: 85 Year
  Sex: Male

DRUGS (3)
  1. CLARITHROMYCIN [Concomitant]
     Indication: PHARYNGITIS
     Dosage: 400 MG DAILY
     Route: 048
     Dates: start: 20111003, end: 20111006
  2. ZYVOX [Suspect]
     Dosage: UNK
     Dates: start: 20111005
  3. WARFARIN [Concomitant]
     Indication: PROPHYLAXIS
     Dosage: 6 MG DAILY
     Route: 048

REACTIONS (1)
  - PROTHROMBIN TIME PROLONGED [None]
